FAERS Safety Report 24673247 (Version 1)
Quarter: 2024Q4

REPORT INFORMATION
  Report Type: Spontaneous
  Country: US (occurrence: US)
  Receive Date: 20241128
  Receipt Date: 20241128
  Transmission Date: 20250114
  Serious: No
  Sender: IBSA INSTITUT BIOCHIMIQUE
  Company Number: US-IBSA PHARMA INC.-2024IBS000110

PATIENT

DRUGS (2)
  1. TIROSINT [Suspect]
     Active Substance: LEVOTHYROXINE SODIUM
     Indication: Product used for unknown indication
     Dosage: TOTAL DAILY DOSE OF 69 MCG (50 MCG+13 MCG+ 1/2 OF 13 MCG)
     Route: 048
     Dates: start: 202212
  2. TIROSINT [Suspect]
     Active Substance: LEVOTHYROXINE SODIUM
     Dosage: TOTAL DAILY DOSE OF 69 MCG (50 MCG+13 MCG+ 1/2 OF 13 MCG)
     Route: 048
     Dates: start: 202212

REACTIONS (3)
  - Diarrhoea [Unknown]
  - Wrong technique in product usage process [Unknown]
  - Product odour abnormal [Unknown]

NARRATIVE: CASE EVENT DATE: 20221201
